FAERS Safety Report 21218002 (Version 1)
Quarter: 2022Q3

REPORT INFORMATION
  Report Type: Spontaneous
  Country: US (occurrence: None)
  Receive Date: 20220816
  Receipt Date: 20220816
  Transmission Date: 20221027
  Serious: No
  Sender: FDA-Public Use
  Company Number: None

PATIENT
  Age: 55 Year
  Sex: Female

DRUGS (1)
  1. OCREVUS [Suspect]
     Active Substance: OCRELIZUMAB
     Indication: Product used for unknown indication

REACTIONS (5)
  - Ear pruritus [None]
  - Feeling hot [None]
  - Pruritus [None]
  - Rash papular [None]
  - Infusion related reaction [None]

NARRATIVE: CASE EVENT DATE: 20220815
